FAERS Safety Report 12632589 (Version 2)
Quarter: 2016Q3

REPORT INFORMATION
  Report Type: Spontaneous
  Country: US (occurrence: US)
  Receive Date: 20160808
  Receipt Date: 20160808
  Transmission Date: 20161109
  Serious: No
  Sender: FDA-Public Use
  Company Number: US-BEH-2015056127

PATIENT
  Sex: Female
  Weight: 58 kg

DRUGS (25)
  1. HIZENTRA [Suspect]
     Active Substance: HUMAN IMMUNOGLOBULIN G
  2. FLONASE [Concomitant]
     Active Substance: FLUTICASONE PROPIONATE
  3. EPIPEN [Concomitant]
     Active Substance: EPINEPHRINE
  4. CENTRUM SILVER [Concomitant]
     Active Substance: MINERALS\VITAMINS
  5. ADVIL [Concomitant]
     Active Substance: IBUPROFEN
  6. DIPHENHYDRAMINE. [Concomitant]
     Active Substance: DIPHENHYDRAMINE
  7. LIDOCAINE/PRILOCAINE [Concomitant]
     Active Substance: LIDOCAINE\PRILOCAINE
  8. MULTIVITAMIN [Concomitant]
     Active Substance: VITAMINS
  9. HIZENTRA [Suspect]
     Active Substance: HUMAN IMMUNOGLOBULIN G
  10. ALPRAZOLAM. [Concomitant]
     Active Substance: ALPRAZOLAM
  11. PLAVIX [Concomitant]
     Active Substance: CLOPIDOGREL BISULFATE
  12. AMLODIPINE [Concomitant]
     Active Substance: AMLODIPINE BESYLATE
  13. ACETAMINOPHEN. [Concomitant]
     Active Substance: ACETAMINOPHEN
  14. ALLEGRA-D [Concomitant]
     Active Substance: FEXOFENADINE\PSEUDOEPHEDRINE
  15. HIZENTRA [Suspect]
     Active Substance: HUMAN IMMUNOGLOBULIN G
     Indication: IMMUNODEFICIENCY COMMON VARIABLE
  16. HIZENTRA [Suspect]
     Active Substance: HUMAN IMMUNOGLOBULIN G
     Dosage: STRENGTH OF DOSAGE: 2GM 10 ML; 4GM 20ML  VIALS
     Route: 058
  17. CARVEDILOL. [Concomitant]
     Active Substance: CARVEDILOL
  18. HIZENTRA [Suspect]
     Active Substance: HUMAN IMMUNOGLOBULIN G
  19. TRAMADOL. [Concomitant]
     Active Substance: TRAMADOL
  20. SIMVASTATIN. [Concomitant]
     Active Substance: SIMVASTATIN
  21. LEVOTHYROXINE. [Concomitant]
     Active Substance: LEVOTHYROXINE
  22. CALCIUM [Concomitant]
     Active Substance: CALCIUM
  23. RECLAST [Concomitant]
     Active Substance: ZOLEDRONIC ACID
  24. LISINOPRIL. [Concomitant]
     Active Substance: LISINOPRIL
  25. ASPIRIN EC [Concomitant]
     Active Substance: ASPIRIN

REACTIONS (1)
  - Sinusitis [Unknown]
